FAERS Safety Report 18159469 (Version 2)
Quarter: 2021Q1

REPORT INFORMATION
  Report Type: Spontaneous
  Country: CA (occurrence: CA)
  Receive Date: 20200817
  Receipt Date: 20210323
  Transmission Date: 20210419
  Serious: Yes (Death)
  Sender: FDA-Public Use
  Company Number: CA-ASTRAZENECA-2020SF04020

PATIENT
  Age: 70 Year
  Sex: Male
  Weight: 69 kg

DRUGS (32)
  1. HYDROMORPHONE [Concomitant]
     Active Substance: HYDROMORPHONE
     Dosage: 2 MG S/C PRN
  2. METHYLPREDNISOLONE NOS [Concomitant]
     Active Substance: METHYLPREDNISOLONE
     Route: 042
  3. IMFINZI [Suspect]
     Active Substance: DURVALUMAB
     Indication: NON-SMALL CELL LUNG CANCER
     Dosage: ONCE, 700
     Route: 042
     Dates: start: 2020, end: 2020
  4. PROPOFOL. [Concomitant]
     Active Substance: PROPOFOL
     Dosage: 500 MG IV CONTINUOUS INFUSION PRN
  5. LIXIANA [Concomitant]
     Active Substance: EDOXABAN TOSYLATE
  6. MIDAZOLAM. [Concomitant]
     Active Substance: MIDAZOLAM
     Dosage: 5 MG EVERY 10 MINUTES PRN
     Route: 042
  7. POLYETHYLENE GLYCOL [Concomitant]
     Active Substance: POLYETHYLENE GLYCOLS
     Route: 048
  8. DIAZEPAM. [Concomitant]
     Active Substance: DIAZEPAM
     Dosage: 2.5 MG TWO TIMES A DAY, PRN
     Route: 048
  9. ATORVASTATIN [Concomitant]
     Active Substance: ATORVASTATIN
     Dosage: 40 MG QHS
  10. MEROPENEM. [Concomitant]
     Active Substance: MEROPENEM
     Route: 042
  11. IPRATROPIUM [Concomitant]
     Active Substance: IPRATROPIUM
     Dosage: 80 MCG INH
  12. NOREPINEPHRINE. [Concomitant]
     Active Substance: NOREPINEPHRINE
     Dosage: 8 MG IV PRN
  13. CITALOPRAM [Concomitant]
     Active Substance: CITALOPRAM HYDROBROMIDE
     Dosage: 30.0MG UNKNOWN
     Route: 048
  14. MAGNESIUM SULFATE. [Concomitant]
     Active Substance: MAGNESIUM SULFATE
     Dosage: 5 GRAM PRN
     Route: 042
  15. PANCRELIPASE. [Concomitant]
     Active Substance: PANCRELIPASE
  16. SODIUM BICARBONATE. [Concomitant]
     Active Substance: SODIUM BICARBONATE
     Dosage: 500 MG PER ENTERAL TUBE PRN
  17. ENOXAPARIN [Concomitant]
     Active Substance: ENOXAPARIN
  18. ACETAMINOPHEN. [Concomitant]
     Active Substance: ACETAMINOPHEN
     Dosage: 650 MG ONCE
     Route: 048
  19. COTRIMOXAZOLE [Concomitant]
     Active Substance: SULFAMETHOXAZOLE\TRIMETHOPRIM
     Dosage: 160 MG?800 MG 2 TABLETS PER ENTERAL TUBE
  20. SODIUM PHOSPHATE [Concomitant]
     Active Substance: SODIUM PHOSPHATE
     Dosage: 30 MMOL IV PRN
  21. FAMOTIDINE. [Concomitant]
     Active Substance: FAMOTIDINE
     Route: 042
  22. INFLIXIMAB [Concomitant]
     Active Substance: INFLIXIMAB
     Dosage: 350 MG IV INTO 1 DOSE (4/40)
  23. MIRTAZAPINE. [Concomitant]
     Active Substance: MIRTAZAPINE
     Dosage: 7.5 MG QHS3/26 ?4/02
     Route: 048
  24. POTASSIUM CHLORIDE. [Concomitant]
     Active Substance: POTASSIUM CHLORIDE
     Dosage: 20 MMOL IV PRN
  25. PREDNISONE. [Concomitant]
     Active Substance: PREDNISONE
     Route: 048
  26. SALBUTAMOL [Concomitant]
     Active Substance: ALBUTEROL
     Dosage: 400 MCG INH QID
  27. DIPHENHYDRAMINE. [Concomitant]
     Active Substance: DIPHENHYDRAMINE
     Dosage: 50 MG IV ONCE
  28. COTAZYM [Concomitant]
     Active Substance: PANCRELIPASE AMYLASE\PANCRELIPASE LIPASE\PANCRELIPASE PROTEASE
     Dosage: 20 1 CAP PER ENTERAL TUBE PRN
  29. PIPERACILLIN/TAZOBACTAM [Concomitant]
     Active Substance: PIPERACILLIN SODIUM\TAZOBACTAM SODIUM
     Route: 042
  30. FRAGMIN [Concomitant]
     Active Substance: DALTEPARIN SODIUM
  31. FENTANYL. [Concomitant]
     Active Substance: FENTANYL
     Dosage: 50 MCG EVERY 10 MINUTES PRN
     Route: 042
  32. AZITHROMYCIN ANHYDROUS. [Concomitant]
     Active Substance: AZITHROMYCIN ANHYDROUS
     Route: 042

REACTIONS (6)
  - Cough [Fatal]
  - Pneumonitis [Fatal]
  - Oxygen saturation decreased [Fatal]
  - Fatigue [Fatal]
  - Dyspnoea [Fatal]
  - Respiratory failure [Fatal]
